FAERS Safety Report 17571927 (Version 2)
Quarter: 2020Q2

REPORT INFORMATION
  Report Type: Spontaneous
  Country: US (occurrence: US)
  Receive Date: 20200323
  Receipt Date: 20200518
  Transmission Date: 20200713
  Serious: No
  Sender: FDA-Public Use
  Company Number: US-LEO PHARMA-328810

PATIENT
  Age: 71 Year
  Sex: Male

DRUGS (1)
  1. PICATO [Suspect]
     Active Substance: INGENOL MEBUTATE
     Indication: ACTINIC KERATOSIS
     Dosage: USED 9 TUBES OF PICATO 0.015% ON FACE SCALP OVER THREE DAYS.
     Route: 061
     Dates: start: 202001

REACTIONS (4)
  - Medication error [Unknown]
  - Actinic keratosis [Not Recovered/Not Resolved]
  - Product administration error [Unknown]
  - Inappropriate schedule of product administration [Unknown]
